FAERS Safety Report 9786111 (Version 1)
Quarter: 2013Q4

REPORT INFORMATION
  Report Type: Spontaneous
  Country: US (occurrence: None)
  Receive Date: 20131224
  Receipt Date: 20131224
  Transmission Date: 20140711
  Serious: Yes (Death)
  Sender: FDA-Public Use
  Company Number: UTC-042196

PATIENT
  Age: 67 Year
  Sex: Female

DRUGS (9)
  1. REMODULIN (1 MILLIGRAM/MILLILITERS, INJECTION FOR INFUSION) (TREPROSTINIL SODIUM) [Suspect]
     Indication: PULMONARY ARTERIAL HYPERTENSION
     Dosage: 0.012 UG/KG, 1 IN 1 MIN
     Route: 041
     Dates: start: 20131118
  2. SILDENAFIL (UNKNOWN) [Concomitant]
  3. LASIX (FUROSEMIDE) (UNKNOWN) [Concomitant]
  4. LISINOPRIL (UNKNOWN) [Concomitant]
  5. ANASTROZOLE (UNKNOWN) [Concomitant]
  6. METOPROLOL (UNKNOWN) [Concomitant]
  7. LIPITOR (ATORVASTATIN CALCIUM) (UNKNOWN) [Concomitant]
  8. GLIPIZIDE (UNKNOWN) [Concomitant]
  9. METFORMIN (UNKNOWN) [Concomitant]

REACTIONS (1)
  - Death [None]
